FAERS Safety Report 11593583 (Version 1)
Quarter: 2015Q4

REPORT INFORMATION
  Report Type: Spontaneous
  Country: US (occurrence: None)
  Receive Date: 20151002
  Receipt Date: 20151002
  Transmission Date: 20160304
  Serious: No
  Sender: FDA-Public Use
  Company Number: None

PATIENT
  Age: 3 Year
  Sex: Male
  Weight: 17.01 kg

DRUGS (3)
  1. AMOXICILLIN 400/5ML [Suspect]
     Active Substance: AMOXICILLIN
     Indication: PULMONARY CONGESTION
     Route: 048
     Dates: start: 20150922, end: 20151001
  2. AMOXICILLIN 400/5ML [Suspect]
     Active Substance: AMOXICILLIN
     Indication: SINUSITIS
     Route: 048
     Dates: start: 20150922, end: 20151001
  3. CITIROZIN [Concomitant]

REACTIONS (3)
  - Product counterfeit [None]
  - Drug ineffective [None]
  - Product quality issue [None]

NARRATIVE: CASE EVENT DATE: 20150922
